FAERS Safety Report 6292688-8 (Version None)
Quarter: 2009Q3

REPORT INFORMATION
  Report Type: 
  Country: None (occurrence: None)
  Receive Date: 20090731
  Receipt Date: 20090729
  Transmission Date: 20100115
  Serious: Yes (Hospitalization)
  Sender: FDA-Public Use
  Company Number: A0365748A

PATIENT
  Age: 52 Year
  Sex: Male
  Weight: 99.1 kg

DRUGS (14)
  1. AVANDIA [Suspect]
     Indication: TYPE 2 DIABETES MELLITUS
     Dosage: 4MG PER DAY
     Route: 048
     Dates: start: 20011101, end: 20070201
  2. ATENOLOL [Concomitant]
  3. ALLOPURINOL [Concomitant]
  4. PRINIVIL [Concomitant]
  5. NITROGLYCERIN [Concomitant]
  6. VITAMIN E [Concomitant]
  7. ASCORBIC ACID [Concomitant]
  8. CENTRUM [Concomitant]
  9. PLAVIX [Concomitant]
  10. IMDUR [Concomitant]
     Dosage: 600MG TWICE PER DAY
  11. LOPID [Concomitant]
     Dosage: 600MG TWICE PER DAY
  12. STARLIX [Concomitant]
     Dosage: 120MG TWICE PER DAY
     Route: 048
     Dates: start: 20011101
  13. LIPITOR [Concomitant]
     Dosage: 80MG PER DAY
     Route: 048
  14. NORVASC [Concomitant]
     Dosage: 5MG PER DAY
     Route: 048

REACTIONS (14)
  - ACUTE MYOCARDIAL INFARCTION [None]
  - ATRIOVENTRICULAR BLOCK FIRST DEGREE [None]
  - CARDIAC FAILURE CONGESTIVE [None]
  - CORONARY ARTERY DISEASE [None]
  - GOUT [None]
  - HYPERLIPIDAEMIA [None]
  - HYPERTENSION [None]
  - LEFT VENTRICULAR HYPERTROPHY [None]
  - MYOCARDIAL INFARCTION [None]
  - MYOCARDIAL ISCHAEMIA [None]
  - PNEUMONIA [None]
  - PULMONARY OEDEMA [None]
  - TACHYCARDIA [None]
  - WEIGHT INCREASED [None]
